FAERS Safety Report 11031796 (Version 1)
Quarter: 2015Q2

REPORT INFORMATION
  Report Type: Spontaneous
  Country: US (occurrence: US)
  Receive Date: 20150415
  Receipt Date: 20150415
  Transmission Date: 20150821
  Serious: No
  Sender: FDA-Public Use
  Company Number: US-PFIZER INC-2015122302

PATIENT
  Age: 79 Year
  Sex: Female

DRUGS (1)
  1. SUTENT [Suspect]
     Active Substance: SUNITINIB MALATE
     Indication: RENAL CANCER
     Dosage: 25 MG, CYCLIC (DAILY FOR 3WKS ON/ 1WK OFF)
     Dates: start: 201503

REACTIONS (4)
  - Erythema [Unknown]
  - Oral discomfort [Unknown]
  - Urine analysis abnormal [Unknown]
  - Pain in extremity [Unknown]
